FAERS Safety Report 17647801 (Version 1)
Quarter: 2020Q2

REPORT INFORMATION
  Report Type: Spontaneous
  Country: US (occurrence: US)
  Receive Date: 20200408
  Receipt Date: 20200408
  Transmission Date: 20200713
  Serious: No
  Sender: FDA-Public Use
  Company Number: US-009507513-2004USA001204

PATIENT

DRUGS (2)
  1. REMERON [Suspect]
     Active Substance: MIRTAZAPINE
     Route: 048
  2. SINGULAIR [Suspect]
     Active Substance: MONTELUKAST SODIUM
     Route: 048

REACTIONS (1)
  - Drug hypersensitivity [Unknown]
